FAERS Safety Report 7128609-5 (Version None)
Quarter: 2010Q4

REPORT INFORMATION
  Report Type: 
  Country: None (occurrence: None)
  Receive Date: 20101130
  Receipt Date: 20101126
  Transmission Date: 20110411
  Serious: Yes (Hospitalization)
  Sender: FDA-Public Use
  Company Number: FR-ROCHE-528691

PATIENT
  Sex: Female
  Weight: 88 kg

DRUGS (21)
  1. TOCILIZUMAB [Suspect]
     Indication: RHEUMATOID ARTHRITIS
     Dosage: FORM :INFUSION.
     Route: 042
     Dates: start: 20060420
  2. TOCILIZUMAB [Suspect]
     Route: 042
     Dates: start: 20070712
  3. TOCILIZUMAB [Suspect]
     Route: 042
     Dates: start: 20070802
  4. TOCILIZUMAB [Suspect]
     Route: 042
     Dates: start: 20070906
  5. TOCILIZUMAB [Suspect]
     Route: 042
     Dates: start: 20071004
  6. BLINDED TOCILIZUMAB [Suspect]
     Indication: RHEUMATOID ARTHRITIS
     Dosage: DOSE BLINDED.
     Route: 042
  7. SPECIAFOLDINE [Concomitant]
     Dosage: TOTAL DAILY DOSE REPORTED AS ^4 TAB/WK^
     Dates: start: 20071015
  8. MISOPROSTOL [Concomitant]
     Dates: start: 20070125
  9. LEVOTHYROXINE SODIUM [Concomitant]
     Dates: start: 20060116
  10. CHLORMADINONE ACETATE TAB [Concomitant]
     Dates: start: 19950101
  11. FIXICAL [Concomitant]
     Dosage: TOTAL DAILY DOSE REPORTED AS ^1 TAB^
     Dates: start: 20070421
  12. CORTANCYL [Concomitant]
     Dates: start: 20071004
  13. METHOTREXATE [Concomitant]
     Dosage: DRUG NAME REPORTED AS METHOTREXATE Q5
     Dates: start: 19990101
  14. TRAMADOL HCL [Concomitant]
     Dates: start: 20070502, end: 20071031
  15. TRAMADOL HCL [Concomitant]
     Dates: start: 20071101
  16. DICLOFENAC SODIUM [Concomitant]
     Dates: start: 19970101, end: 20071101
  17. PREDNISONE [Concomitant]
     Dates: start: 20071006, end: 20071111
  18. PREDNISONE [Concomitant]
     Dates: start: 20071112, end: 20071112
  19. PREDNISONE [Concomitant]
     Dates: start: 20071113
  20. PARACETAMOL [Concomitant]
     Dates: start: 20071113
  21. 1 CONCOMITANT DRUG [Concomitant]
     Dosage: DRUG: CORDUAZOL TART
     Dates: start: 20071115, end: 20071115

REACTIONS (3)
  - GASTROINTESTINAL NECROSIS [None]
  - LARGE INTESTINE PERFORATION [None]
  - PERITONITIS [None]
